FAERS Safety Report 10053301 (Version 4)
Quarter: 2014Q2

REPORT INFORMATION
  Report Type: Spontaneous
  Country: DK (occurrence: DK)
  Receive Date: 20140402
  Receipt Date: 20140416
  Transmission Date: 20141212
  Serious: Yes (Hospitalization, Disabling, Other)
  Sender: FDA-Public Use
  Company Number: DK-009507513-1403DNK014260

PATIENT
  Age: 59 Year
  Sex: Male

DRUGS (3)
  1. PEGINTRON [Suspect]
     Indication: CHRONIC HEPATITIS C
     Dates: start: 20120911, end: 20140224
  2. TELAPREVIR [Concomitant]
     Dosage: UNK
     Dates: start: 20120911, end: 20121204
  3. RIBAVIRIN [Concomitant]
     Dosage: UNK
     Route: 048
     Dates: start: 20120911

REACTIONS (13)
  - Pancreatic pseudocyst [Unknown]
  - Abdominal pain [Unknown]
  - Pancreatic disorder [Unknown]
  - Dyspepsia [Unknown]
  - Influenza like illness [Unknown]
  - Delusion [Unknown]
  - Fatigue [Unknown]
  - Pancreatic necrosis [Unknown]
  - Pancreatitis [Unknown]
  - Fatigue [Unknown]
  - Pain [Unknown]
  - Stent placement [Unknown]
  - Stent removal [Unknown]
